FAERS Safety Report 4537587-4 (Version None)
Quarter: 2004Q4

REPORT INFORMATION
  Report Type: 
  Country: None (occurrence: None)
  Receive Date: 20041221
  Receipt Date: 20040929
  Transmission Date: 20050328
  Serious: No
  Sender: FDA-Public Use
  Company Number: A-US2004-06969

PATIENT
  Age: 50 Year
  Sex: Female

DRUGS (13)
  1. TRACLEER [Suspect]
     Indication: PULMONARY HYPERTENSION
     Dosage: SEE IMAGE
     Route: 048
     Dates: start: 20040624, end: 20040816
  2. TRACLEER [Suspect]
     Indication: PULMONARY HYPERTENSION
     Dosage: SEE IMAGE
     Route: 048
     Dates: start: 20040817, end: 20040922
  3. TRACLEER [Suspect]
     Indication: PULMONARY HYPERTENSION
     Dosage: SEE IMAGE
     Route: 048
     Dates: start: 20040923
  4. FLOFLAN [Concomitant]
  5. PEPCID [Concomitant]
  6. SYNTHROID [Concomitant]
  7. FLOVENT [Concomitant]
  8. LEXAPRO [Concomitant]
  9. ZOFRAN [Concomitant]
  10. MAGNESIUM OXIDE (MAGNESIUM OXIDE0 [Concomitant]
  11. LASIX [Concomitant]
  12. COUMADIN [Concomitant]
  13. PERCOCET [Concomitant]

REACTIONS (7)
  - ABDOMINAL PAIN [None]
  - ALANINE AMINOTRANSFERASE INCREASED [None]
  - ASPARTATE AMINOTRANSFERASE INCREASED [None]
  - BLOOD ALKALINE PHOSPHATASE INCREASED [None]
  - DIARRHOEA [None]
  - LIVER FUNCTION TEST ABNORMAL [None]
  - NAUSEA [None]
